FAERS Safety Report 17268031 (Version 4)
Quarter: 2020Q1

REPORT INFORMATION
  Report Type: Report from Study
  Country: US (occurrence: US)
  Receive Date: 20200114
  Receipt Date: 20200217
  Transmission Date: 20200409
  Serious: No
  Sender: FDA-Public Use
  Company Number: NVSC2020US006303

PATIENT
  Age: 55 Year
  Sex: Female
  Weight: 77.11 kg

DRUGS (2)
  1. GILENYA [Suspect]
     Active Substance: FINGOLIMOD HYDROCHLORIDE
     Indication: MULTIPLE SCLEROSIS
     Dosage: 0.5 MG, QD
     Route: 048
     Dates: start: 20200103
  2. GILENYA [Suspect]
     Active Substance: FINGOLIMOD HYDROCHLORIDE
     Indication: RELAPSING-REMITTING MULTIPLE SCLEROSIS

REACTIONS (12)
  - Peroneal nerve palsy [Unknown]
  - Central nervous system lesion [Unknown]
  - Nightmare [Unknown]
  - Headache [Not Recovered/Not Resolved]
  - Back pain [Unknown]
  - Feeling abnormal [Unknown]
  - Somnambulism [Unknown]
  - Fall [Unknown]
  - Hot flush [Unknown]
  - Muscle spasms [Unknown]
  - Depression [Unknown]
  - Dizziness [Unknown]

NARRATIVE: CASE EVENT DATE: 20200103
